FAERS Safety Report 24080774 (Version 1)
Quarter: 2024Q3

REPORT INFORMATION
  Report Type: Spontaneous
  Country: LK (occurrence: None)
  Receive Date: 20240711
  Receipt Date: 20240711
  Transmission Date: 20241017
  Serious: Yes (Other)
  Sender: ASTRAZENECA
  Company Number: 2024A153778

PATIENT
  Age: 67 Year
  Sex: Male

DRUGS (5)
  1. OMEPRAZOLE [Suspect]
     Active Substance: OMEPRAZOLE
     Indication: Dyspepsia
     Route: 048
  2. CORIANDER OIL [Suspect]
     Active Substance: CORIANDER OIL
     Indication: Phytotherapy
     Dosage: UNKNOWN DOSE DAILY
  3. GINGER [Suspect]
     Active Substance: GINGER
     Indication: Phytotherapy
     Dosage: UNKNOWN DOSE DAILY
  4. COSCINIUM FENESTRATUM [Concomitant]
     Indication: Phytotherapy
     Dosage: UNKNOWN DOSE DAILY
  5. ALPINIA CALCARATA [Concomitant]
     Indication: Phytotherapy
     Dosage: UNKNOWN DOSE DAILY

REACTIONS (1)
  - Insulin autoimmune syndrome [Recovering/Resolving]
